FAERS Safety Report 20001349 (Version 1)
Quarter: 2021Q4

REPORT INFORMATION
  Report Type: Spontaneous
  Country: ES (occurrence: ES)
  Receive Date: 20211027
  Receipt Date: 20211027
  Transmission Date: 20220303
  Serious: Yes (Life-Threatening, Hospitalization)
  Sender: FDA-Public Use
  Company Number: None

PATIENT
  Age: 55 Year
  Sex: Female

DRUGS (13)
  1. CERTICAN [Suspect]
     Active Substance: EVEROLIMUS
     Indication: Renal transplant
     Dosage: 4.0 COMP A-DE
     Route: 048
     Dates: start: 20210728
  2. ARANESP [Concomitant]
     Active Substance: DARBEPOETIN ALFA
     Indication: Renal transplant
     Dosage: 40.0 MCG C/14 DIAS
     Route: 042
     Dates: start: 20210729
  3. PREDNISONE [Concomitant]
     Active Substance: PREDNISONE
     Indication: Renal transplant
     Dosage: 20.0 MG DE
     Route: 048
     Dates: start: 20210616
  4. ZEMPLAR [Concomitant]
     Active Substance: PARICALCITOL
     Indication: Hyperparathyroidism secondary
     Dosage: 1.0 MCG C/24 H
     Route: 048
     Dates: start: 20180518
  5. AMLODIPINE BESYLATE [Concomitant]
     Active Substance: AMLODIPINE BESYLATE
     Indication: Renal transplant
     Dosage: 5.0 MG DE
     Route: 048
     Dates: start: 20210629
  6. TRILEPTAL [Concomitant]
     Active Substance: OXCARBAZEPINE
     Indication: Epilepsy
     Dosage: 300.0 MG C/24 H
     Route: 048
     Dates: start: 20120523
  7. LORMETAZEPAM CINFA [Concomitant]
     Indication: Insomnia
     Dosage: 2.0 MG C/24 H NOC
     Route: 048
     Dates: start: 20110905
  8. ALFAPSIN [Concomitant]
     Indication: Osteoarthritis
     Dosage: 1.0 APLIC C/8 HORAS
     Route: 061
     Dates: start: 20180528
  9. NEUPRO [Concomitant]
     Active Substance: ROTIGOTINE
     Indication: Extrapyramidal disorder
     Dosage: 1.0 MG C/24 H
     Route: 065
     Dates: start: 20200626
  10. CALCIFEDIOL [Concomitant]
     Active Substance: CALCIFEDIOL
     Indication: Nephropathy
     Dosage: 16000.0 UI C/30 DIAS
     Route: 048
     Dates: start: 20140621
  11. PANTOPRAZOLE SODIUM [Concomitant]
     Active Substance: PANTOPRAZOLE SODIUM
     Indication: Dyspepsia
     Dosage: 40.0 MG DECE
     Route: 048
     Dates: start: 20180728
  12. VALGANCICLOVIR [Concomitant]
     Active Substance: VALGANCICLOVIR
     Indication: Renal transplant
     Dosage: 450.0 MG C/24 H
     Route: 048
     Dates: start: 20210616
  13. SERETIDE [Concomitant]
     Active Substance: FLUTICASONE PROPIONATE\SALMETEROL XINAFOATE
     Indication: Nephropathy
     Dosage: 2.0 PUFF C/12 H
     Route: 065
     Dates: start: 20190920

REACTIONS (3)
  - Pneumonitis [Recovered/Resolved]
  - Overdose [Recovered/Resolved]
  - Medication error [Recovered/Resolved]

NARRATIVE: CASE EVENT DATE: 20210809
